FAERS Safety Report 8617618-2 (Version None)
Quarter: 2012Q3

REPORT INFORMATION
  Report Type: 
  Country: None (occurrence: None)
  Receive Date: 20120824
  Receipt Date: 20120105
  Transmission Date: 20120928
  Serious: No
  Sender: FDA-Public Use
  Company Number: US-ASTRAZENECA-2011SE73797

PATIENT
  Age: 80 Year
  Sex: Female
  Weight: 46.3 kg

DRUGS (3)
  1. THREE DIFFERENT PILLS [Concomitant]
  2. BLOOD PRESSURE PILLS [Concomitant]
  3. SYMBICORT [Suspect]
     Indication: ASTHMA
     Dosage: 160/4.5 MCG TWO PUFFS TWO TIMES A DAY
     Route: 055
     Dates: start: 20110801

REACTIONS (4)
  - DYSPNOEA [None]
  - ASTHENIA [None]
  - DRUG DOSE OMISSION [None]
  - ARTHRITIS [None]
